FAERS Safety Report 5091901-2 (Version None)
Quarter: 2006Q3

REPORT INFORMATION
  Report Type: 
  Country: None (occurrence: None)
  Receive Date: 20060825
  Receipt Date: 20060814
  Transmission Date: 20061208
  Serious: Yes (Other)
  Sender: FDA-Public Use
  Company Number: 2006066748

PATIENT
  Age: 26 Year
  Sex: Male

DRUGS (2)
  1. VIBRAMYCIN [Suspect]
     Indication: PROSTATE INFECTION
  2. TOPIRAMATE [Suspect]
     Indication: MIGRAINE PROPHYLAXIS

REACTIONS (1)
  - PANCREATITIS [None]
